FAERS Safety Report 13945189 (Version 2)
Quarter: 2017Q3

REPORT INFORMATION
  Report Type: Spontaneous
  Country: DE (occurrence: DE)
  Receive Date: 20170907
  Receipt Date: 20170925
  Transmission Date: 20171128
  Serious: Yes (Disabling)
  Sender: FDA-Public Use
  Company Number: DE-TORRENT-00007032

PATIENT
  Age: 25 Year
  Sex: Male
  Weight: 57 kg

DRUGS (1)
  1. ESCITALOPRAM [Suspect]
     Active Substance: ESCITALOPRAM OXALATE

REACTIONS (3)
  - Disturbance in sexual arousal [Not Recovered/Not Resolved]
  - Male orgasmic disorder [Not Recovered/Not Resolved]
  - Libido decreased [Not Recovered/Not Resolved]

NARRATIVE: CASE EVENT DATE: 201402
